FAERS Safety Report 20938135 (Version 1)
Quarter: 2022Q2

REPORT INFORMATION
  Report Type: Spontaneous
  Country: US (occurrence: None)
  Receive Date: 20220608
  Receipt Date: 20220608
  Transmission Date: 20220721
  Serious: Yes (unspecified)
  Sender: FDA-Public Use
  Company Number: None

PATIENT
  Age: 54 Year
  Sex: Female
  Weight: 103.95 kg

DRUGS (11)
  1. .DELTA.8-TETRAHYDROCANNABINOL\CANNABIDIOL\HERBALS [Suspect]
     Active Substance: .DELTA.8-TETRAHYDROCANNABINOL\CANNABIDIOL\HERBALS
     Indication: Back pain
     Dosage: OTHER QUANTITY : 1 GUMMY;?
     Route: 048
     Dates: start: 20220606, end: 20220606
  2. LISINOPRIL [Concomitant]
     Active Substance: LISINOPRIL
  3. GABAPENTIN [Concomitant]
     Active Substance: GABAPENTIN
  4. PANTOPRAZOLE [Concomitant]
     Active Substance: PANTOPRAZOLE
  5. FLUOXETINE [Concomitant]
     Active Substance: FLUOXETINE HYDROCHLORIDE
  6. ATORVASTATIN [Concomitant]
     Active Substance: ATORVASTATIN
  7. ASPIRIN [Concomitant]
     Active Substance: ASPIRIN
  8. VITAMIN B12 [Concomitant]
     Active Substance: CYANOCOBALAMIN
  9. VITAMINS [Concomitant]
     Active Substance: VITAMINS
  10. BIOTIN [Concomitant]
     Active Substance: BIOTIN
  11. CALCIUM\VITAMIN D [Concomitant]
     Active Substance: CALCIUM\VITAMIN D

REACTIONS (7)
  - Dizziness [None]
  - Nausea [None]
  - Vomiting [None]
  - Syncope [None]
  - Palpitations [None]
  - Respiratory disorder [None]
  - Feeling abnormal [None]

NARRATIVE: CASE EVENT DATE: 20220606
